FAERS Safety Report 5255787-5 (Version None)
Quarter: 2007Q1

REPORT INFORMATION
  Report Type: 
  Country: None (occurrence: None)
  Receive Date: 20070228
  Receipt Date: 20070226
  Transmission Date: 20070707
  Serious: Yes (Death)
  Sender: FDA-Public Use
  Company Number: THQ2007A00165

PATIENT
  Age: 74 Year
  Sex: Male

DRUGS (4)
  1. LEUPROLIDE ACETATE [Suspect]
     Indication: PROSTATE CANCER
     Dosage: 3.75 MG (3.75 MG, 1 IN 1 M)
     Dates: start: 20060925, end: 20061120
  2. BICALUTAMIDE [Concomitant]
  3. CARBAZOCHROME [Concomitant]
  4. ZOLEDRONIC ACID [Concomitant]

REACTIONS (3)
  - HYPOXIA [None]
  - PNEUMONIA [None]
  - SEPTIC SHOCK [None]
